FAERS Safety Report 19838980 (Version 1)
Quarter: 2021Q3

REPORT INFORMATION
  Report Type: Spontaneous
  Country: JP (occurrence: JP)
  Receive Date: 20210916
  Receipt Date: 20210916
  Transmission Date: 20211014
  Serious: Yes (Other)
  Sender: FDA-Public Use
  Company Number: JP-GLAXOSMITHKLINE-JP2021196441

PATIENT
  Age: 7 Decade
  Sex: Female

DRUGS (1)
  1. ZEJULA [Suspect]
     Active Substance: NIRAPARIB
     Indication: OVARIAN CANCER RECURRENT
     Dosage: 100 MILLIGRAM, QD
     Route: 048
     Dates: start: 20201209, end: 20210906

REACTIONS (4)
  - Ovarian cancer recurrent [Unknown]
  - Malaise [Unknown]
  - Decreased appetite [Unknown]
  - Disease progression [Unknown]

NARRATIVE: CASE EVENT DATE: 20210906
